FAERS Safety Report 9485906 (Version 1)
Quarter: 2013Q3

REPORT INFORMATION
  Report Type: Spontaneous
  Country: US (occurrence: None)
  Receive Date: 20130826
  Receipt Date: 20130826
  Transmission Date: 20140515
  Serious: Yes (Hospitalization)
  Sender: FDA-Public Use
  Company Number: 150471

PATIENT
  Age: 78 Year
  Sex: Female
  Weight: 74 kg

DRUGS (2)
  1. LEUCOVORIN CALCIUM FOR INJ. 50MG [Suspect]
     Indication: COLON CANCER STAGE II
  2. LEUVOCOVORIN (FOLFOX) [Concomitant]

REACTIONS (2)
  - Organising pneumonia [None]
  - Cardio-respiratory arrest [None]
